FAERS Safety Report 9727126 (Version 1)
Quarter: 2013Q4

REPORT INFORMATION
  Report Type: Report from Study
  Country: DE (occurrence: DE)
  Receive Date: 20131203
  Receipt Date: 20131203
  Transmission Date: 20140711
  Serious: Yes (Other)
  Sender: FDA-Public Use
  Company Number: PHHY2013DE139390

PATIENT
  Sex: Male

DRUGS (2)
  1. FTY 720 [Suspect]
     Indication: MULTIPLE SCLEROSIS
     Dosage: 0.5 MG, QD
     Route: 048
     Dates: start: 20120425, end: 20130114
  2. MIRTAZAPINE [Concomitant]
     Dosage: 45 MG, QD
     Dates: start: 20111201

REACTIONS (2)
  - Lymphocytosis [Recovered/Resolved]
  - Lymphocyte count decreased [Not Recovered/Not Resolved]
